FAERS Safety Report 14612772 (Version 1)
Quarter: 2018Q1

REPORT INFORMATION
  Report Type: Spontaneous
  Country: FR (occurrence: FR)
  Receive Date: 20180308
  Receipt Date: 20180308
  Transmission Date: 20180509
  Serious: Yes (Other)
  Sender: FDA-Public Use
  Company Number: FR-AUROBINDO-AUR-APL-2017-19606

PATIENT
  Age: 17 Year
  Sex: Female

DRUGS (4)
  1. IBUPROFEN. [Suspect]
     Active Substance: IBUPROFEN
     Dosage: 400 MG 4 TIMES A DAY
     Route: 065
     Dates: start: 201302
  2. IBUPROFEN. [Suspect]
     Active Substance: IBUPROFEN
     Dosage: 400 MG 4-5 TIMES A DAY
     Route: 065
     Dates: start: 201306
  3. IBUPROFEN. [Suspect]
     Active Substance: IBUPROFEN
     Dosage: 400 MG 8 TIMES A DAY
     Route: 065
     Dates: start: 201304
  4. MIRTAZAPINE. [Concomitant]
     Active Substance: MIRTAZAPINE
     Indication: MAJOR DEPRESSION
     Dosage: 15 MG, DAILY
     Route: 065
     Dates: start: 201303

REACTIONS (10)
  - Drug dependence [Unknown]
  - Drug ineffective [Unknown]
  - Social problem [Unknown]
  - Headache [Unknown]
  - Anxiety [Unknown]
  - Drug withdrawal syndrome [Unknown]
  - Hyperhidrosis [Unknown]
  - Intentional overdose [Unknown]
  - Tremor [Unknown]
  - Irritability [Unknown]
